FAERS Safety Report 21157344 (Version 1)
Quarter: 2022Q3

REPORT INFORMATION
  Report Type: Spontaneous
  Country: US (occurrence: US)
  Receive Date: 20220801
  Receipt Date: 20220801
  Transmission Date: 20221027
  Serious: No
  Sender: FDA-Public Use
  Company Number: US-PFIZER INC-202201018029

PATIENT
  Age: 59 Year
  Sex: Male
  Weight: 104.33 kg

DRUGS (2)
  1. PRISTIQ EXTENDED-RELEASE [Suspect]
     Active Substance: DESVENLAFAXINE SUCCINATE
     Indication: Depression
     Dosage: 50 MG, 1X/DAY
  2. PRISTIQ EXTENDED-RELEASE [Suspect]
     Active Substance: DESVENLAFAXINE SUCCINATE
     Dosage: 25 MG

REACTIONS (10)
  - Drug ineffective [Unknown]
  - Feeling abnormal [Unknown]
  - Influenza like illness [Unknown]
  - Dizziness [Unknown]
  - Feeling abnormal [Unknown]
  - Head discomfort [Unknown]
  - Balance disorder [Unknown]
  - Disturbance in attention [Unknown]
  - Memory impairment [Unknown]
  - Blood pressure increased [Unknown]
